FAERS Safety Report 8617945-9 (Version None)
Quarter: 2012Q3

REPORT INFORMATION
  Report Type: 
  Country: None (occurrence: None)
  Receive Date: 20120824
  Receipt Date: 20120309
  Transmission Date: 20120928
  Serious: No
  Sender: FDA-Public Use
  Company Number: US-ASTRAZENECA-2012SE16668

PATIENT
  Sex: Male

DRUGS (4)
  1. BUDESONIDE [Concomitant]
  2. BROVANA [Concomitant]
  3. PREDNISONE TAB [Concomitant]
  4. SYMBICORT [Suspect]
     Route: 055

REACTIONS (2)
  - DYSPNOEA [None]
  - ASTHENIA [None]
